FAERS Safety Report 9175692 (Version 1)
Quarter: 2012Q4

REPORT INFORMATION
  Report Type: Report from Study
  Country: JP (occurrence: JP)
  Receive Date: 20120915
  Receipt Date: 20120915
  Transmission Date: 20130627
  Serious: Yes (Other)
  Sender: FDA-Public Use
  Company Number: JP-009507513-1209JPN003160

PATIENT

DRUGS (5)
  1. PEGINTRON [Suspect]
     Indication: HEPATITIS C
     Dosage: 1.5 Microgram per kilogram, qw
     Route: 058
     Dates: start: 20120705, end: 20120722
  2. PEGINTRON [Suspect]
     Dosage: 80 Microgram, qw
     Route: 058
     Dates: start: 20120802
  3. REBETOL [Suspect]
     Indication: HEPATITIS C
     Dosage: 600 mg, qd
     Route: 048
     Dates: start: 20120705, end: 20120722
  4. REBETOL [Suspect]
     Dosage: 200 mg, qd
     Route: 048
     Dates: start: 20120802
  5. TELAVIC [Suspect]
     Indication: HEPATITIS C
     Dosage: Dose: 1500 mg, cumulative dose: 27000mg
     Route: 048
     Dates: start: 20120705, end: 20120722

REACTIONS (1)
  - Dizziness [Recovering/Resolving]
